FAERS Safety Report 8417716-2 (Version None)
Quarter: 2012Q2

REPORT INFORMATION
  Report Type: 
  Country: None (occurrence: None)
  Receive Date: 20120607
  Receipt Date: 20120530
  Transmission Date: 20120825
  Serious: Yes (Hospitalization)
  Sender: FDA-Public Use
  Company Number: FI-BIOGENIDEC-2012BI011060

PATIENT
  Age: 35 Year
  Sex: Female

DRUGS (2)
  1. TYSABRI [Suspect]
     Indication: RELAPSING-REMITTING MULTIPLE SCLEROSIS
     Route: 042
     Dates: start: 20100118
  2. ESOMEPRATSOL [Concomitant]
     Indication: OESOPHAGITIS
     Route: 048
     Dates: start: 20100101

REACTIONS (1)
  - COLON ADENOMA [None]
